FAERS Safety Report 15163430 (Version 2)
Quarter: 2022Q1

REPORT INFORMATION
  Report Type: Spontaneous
  Country: CH (occurrence: CH)
  Receive Date: 20180719
  Receipt Date: 20220128
  Transmission Date: 20220423
  Serious: Yes (Hospitalization, Other)
  Sender: FDA-Public Use
  Company Number: CH-SM-2018-10477

PATIENT
  Age: 48 Year
  Sex: Male

DRUGS (9)
  1. LOSARTAN [Suspect]
     Active Substance: LOSARTAN
     Indication: Hypertension
     Dosage: LOSARTAN-MEPHA (LOSARTAN) (STRENGTH UNKNOWN) HALF-0-0-HALF ORAL ADMINISTRATION BEGINNING SUMMER 2018
     Route: 048
     Dates: start: 2018, end: 20180606
  2. NIFEDIPINE [Suspect]
     Active Substance: NIFEDIPINE
     Indication: Hypertension
     Dosage: NIFEDIPINE RETARD (EXACT PRODUCT UNKNOWN) 20 MG ORAL ADMINISTRATION 1-0-0,
     Route: 048
     Dates: start: 201804, end: 20180606
  3. HORSE CHESTNUT [Suspect]
     Active Substance: HORSE CHESTNUT
     Dosage: ALTERNATIVE MEDICINE PRODUCT WITH HORSE CHESTNUT EXTRACT
     Route: 042
     Dates: end: 20180606
  4. PHENPROCOUMON [Concomitant]
     Active Substance: PHENPROCOUMON
     Dosage: MARCOUMAR (PHENPROCOUMON) DOSING ACCORDING TO INR: TARGET-INR 2.5 - 3.5
     Route: 048
  5. SIMVASTATIN [Concomitant]
     Active Substance: SIMVASTATIN
     Dosage: SIMCORA (SIMVASTATIN) 80 MG 1-0-0-0
     Route: 048
  6. BURGERSTEIN TOP VITAL [Concomitant]
     Dosage: ORAL ADMINISTRATION SINCE UNKNOWN PERIOD OF TIME, CONTINUING
     Route: 048
  7. CHOLECALCIFEROL [Concomitant]
     Active Substance: CHOLECALCIFEROL
     Dosage: DROPS 8-0-0-0 ORAL ADMINISTRATION SINCE UNKNOWN PERIOD OF TIME, CONTINUING
     Route: 048
  8. OMEGA 3 [Concomitant]
     Active Substance: CAPSAICIN
     Dosage: OMEGA 3
     Route: 048
  9. VITAMIN C [Concomitant]
     Active Substance: ASCORBIC ACID
     Dosage: 1 GRAM DAILY; ORAL ADMINISTRATION SINCE UNKNOWN PERIOD OF TIME, CONTINUING
     Route: 048

REACTIONS (1)
  - Drug-induced liver injury [Recovering/Resolving]

NARRATIVE: CASE EVENT DATE: 20180607
